FAERS Safety Report 6927209-7 (Version None)
Quarter: 2010Q3

REPORT INFORMATION
  Report Type: 
  Country: None (occurrence: None)
  Receive Date: 20100816
  Receipt Date: 20100811
  Transmission Date: 20110219
  Serious: Yes (Other)
  Sender: FDA-Public Use
  Company Number: IT-BRISTOL-MYERS SQUIBB COMPANY-15239205

PATIENT
  Age: 81 Year
  Sex: Male

DRUGS (3)
  1. COUMADIN [Suspect]
     Indication: ANTIPHOSPHOLIPID SYNDROME
     Dates: start: 20040507, end: 20100709
  2. INDOMEE [Suspect]
     Indication: CATARACT
     Dosage: EYEDROPS. 1 DF= 3DROPS
     Dates: start: 20100701, end: 20100707
  3. TAMSULOSIN HCL [Concomitant]
     Dosage: CAPS
     Route: 048

REACTIONS (2)
  - CATARACT [None]
  - INTERNATIONAL NORMALISED RATIO INCREASED [None]
